FAERS Safety Report 19867715 (Version 1)
Quarter: 2021Q3

REPORT INFORMATION
  Report Type: Spontaneous
  Country: IT (occurrence: IT)
  Receive Date: 20210922
  Receipt Date: 20210922
  Transmission Date: 20211014
  Serious: Yes (Life-Threatening, Other)
  Sender: FDA-Public Use
  Company Number: IT-MYLANLABS-2021M1064266

PATIENT
  Age: 49 Year
  Sex: Male
  Weight: 95 kg

DRUGS (1)
  1. DYMISTA [Suspect]
     Active Substance: AZELASTINE HYDROCHLORIDE\FLUTICASONE PROPIONATE
     Indication: HYPERSENSITIVITY
     Dosage: 1 DOSAGE FORM, QD
     Route: 055
     Dates: start: 20210324, end: 20210326

REACTIONS (3)
  - Drug abuse [Unknown]
  - Bronchospasm [Recovering/Resolving]
  - Choking sensation [Recovering/Resolving]

NARRATIVE: CASE EVENT DATE: 20210329
